FAERS Safety Report 10463054 (Version 3)
Quarter: 2018Q3

REPORT INFORMATION
  Report Type: Spontaneous
  Country: US (occurrence: US)
  Receive Date: 20140919
  Receipt Date: 20180920
  Transmission Date: 20181010
  Serious: Yes (Hospitalization, Other)
  Sender: FDA-Public Use
  Company Number: US-CIPLA LTD.-2014US01319

PATIENT

DRUGS (2)
  1. MEMANTINE. [Suspect]
     Active Substance: MEMANTINE
     Dosage: UNK
     Route: 048
  2. DONEPEZIL. [Suspect]
     Active Substance: DONEPEZIL
     Dosage: UNK
     Route: 048

REACTIONS (3)
  - Accidental exposure to product by child [Unknown]
  - Encephalopathy [Recovering/Resolving]
  - Dystonia [Recovering/Resolving]
